FAERS Safety Report 5183015-8 (Version None)
Quarter: 2006Q4

REPORT INFORMATION
  Report Type: 
  Country: None (occurrence: None)
  Receive Date: 20061220
  Receipt Date: 20051202
  Transmission Date: 20070319
  Serious: Yes (Other)
  Sender: FDA-Public Use
  Company Number: US-GLAXOSMITHKLINE-A0584424A

PATIENT
  Age: 67 Year
  Sex: Female

DRUGS (3)
  1. NICODERM CQ [Suspect]
     Indication: EX-SMOKER
     Dates: start: 20051130, end: 20051130
  2. NICORETTE [Suspect]
     Indication: EX-SMOKER
     Dates: start: 19970101
  3. NICODERM CQ [Suspect]
     Indication: EX-SMOKER

REACTIONS (5)
  - APPLICATION SITE ERYTHEMA [None]
  - APPLICATION SITE IRRITATION [None]
  - DRUG ABUSER [None]
  - HYPERSENSITIVITY [None]
  - NICOTINE DEPENDENCE [None]
